FAERS Safety Report 7490009-6 (Version None)
Quarter: 2011Q2

REPORT INFORMATION
  Report Type: 
  Country: None (occurrence: None)
  Receive Date: 20110512
  Receipt Date: 20110429
  Transmission Date: 20111010
  Serious: Yes (Life-Threatening, Other)
  Sender: FDA-Public Use
  Company Number: DSM-2011-00312

PATIENT
  Age: 62 Year
  Sex: Male

DRUGS (10)
  1. ATENOLOL (ATENOLOL) (100 MILLIGRAM)  (ATENOLOL) [Concomitant]
  2. SERETIDE (FLUTICASONE PROPIONATE, SALMETEROL) (FLUTICASONE PROPIONATE, [Concomitant]
  3. SALBUTAMOL (SALBUTAMOL) (SALBUTAMOL) [Concomitant]
  4. MEPRONIZINE (MEPROBAMATE, ACEPROMETAZINE MALEATE) (MEPROBAMATE, ACEPRO [Concomitant]
  5. AMLODIPINE BESYLATE AND OLMESARTAN MEDOXOMIL [Suspect]
     Indication: PRODUCT USED FOR UNKNOWN INDICATION
     Dosage: 40/10 MG,ORAL
     Route: 048
     Dates: start: 20100101, end: 20110117
  6. IPRATROPIUM (IPRATROPIUM) (IPRATROPIUM) [Concomitant]
  7. ALDACTONE [Suspect]
     Indication: PRODUCT USED FOR UNKNOWN INDICATION
     Dosage: ORAL
     Route: 048
     Dates: end: 20110117
  8. SIMVASTATIN (SIMVASTATIN) (40 MILLIGRAM) (SIMVASTATIN) [Concomitant]
  9. ESCITALOPRAM OXALATE [Concomitant]
  10. INEXIUM (ESOMEPRAZOLE SODIUM) (20 MILLIGRAM) (ESOMEPRAZOLE SODIUM) [Concomitant]

REACTIONS (4)
  - GASTROENTERITIS [None]
  - CARDIO-RESPIRATORY ARREST [None]
  - RENAL FAILURE ACUTE [None]
  - VASOPLEGIA SYNDROME [None]
